FAERS Safety Report 4845828-9 (Version None)
Quarter: 2005Q4

REPORT INFORMATION
  Report Type: 
  Country: None (occurrence: None)
  Receive Date: 20051206
  Receipt Date: 20050909
  Transmission Date: 20060501
  Serious: Yes (Other)
  Sender: FDA-Public Use
  Company Number: US-GLAXOSMITHKLINE-A0573612A

PATIENT
  Age: 50 Year
  Weight: 95.5 kg

DRUGS (2)
  1. SEREVENT [Suspect]
     Indication: ASTHMA
     Dosage: 1PUFF UNKNOWN
     Route: 055
     Dates: start: 20040101, end: 20050101
  2. ALBUTEROL [Concomitant]

REACTIONS (1)
  - EPIGLOTTITIS [None]
